FAERS Safety Report 5091638-X (Version None)
Quarter: 2006Q3

REPORT INFORMATION
  Report Type: 
  Country: None (occurrence: None)
  Receive Date: 20060829
  Receipt Date: 20060717
  Transmission Date: 20061208
  Serious: Yes (Other)
  Sender: FDA-Public Use
  Company Number: GB-ABBOTT-06P-167-0338355-00

PATIENT
  Sex: Male

DRUGS (3)
  1. EPILIM TABLETS [Suspect]
     Indication: INFANTILE SPASMS
     Route: 048
     Dates: start: 20060101
  2. CALCITONIN-SALMON [Concomitant]
     Indication: DRUG USE FOR UNKNOWN INDICATION
     Dates: start: 20060101
  3. PHLEXY-VITS [Concomitant]
     Indication: DRUG USE FOR UNKNOWN INDICATION
     Dates: start: 20060101

REACTIONS (3)
  - HEARING IMPAIRED [None]
  - HYPOACUSIS [None]
  - SPEECH DISORDER DEVELOPMENTAL [None]
